FAERS Safety Report 15122013 (Version 1)
Quarter: 2018Q3

REPORT INFORMATION
  Report Type: Spontaneous
  Country: PE (occurrence: PE)
  Receive Date: 20180709
  Receipt Date: 20180709
  Transmission Date: 20181010
  Serious: Yes (Other)
  Sender: FDA-Public Use
  Company Number: PE-MYLANLABS-2018M1049117

PATIENT
  Age: 12 Year
  Sex: Male

DRUGS (26)
  1. GANCICLOVIR. [Suspect]
     Active Substance: GANCICLOVIR
     Dosage: FURTHER INCREASED TO 10 MG/KG
     Route: 065
  2. VALGANCICLOVIR. [Concomitant]
     Active Substance: VALGANCICLOVIR
     Route: 048
  3. PREDNISONE. [Concomitant]
     Active Substance: PREDNISONE
     Route: 065
  4. MYCOPHENOLATE MOFETIL. [Concomitant]
     Active Substance: MYCOPHENOLATE MOFETIL
     Route: 065
  5. GANCICLOVIR. [Suspect]
     Active Substance: GANCICLOVIR
     Dosage: FURTHER ADMINISTERED 200MG EVERY 12 HOURS FOR 7 DAYS
     Route: 042
  6. GANCICLOVIR. [Suspect]
     Active Substance: GANCICLOVIR
     Dosage: LATER, RE?INITIATED AT 230MG EVERY 12 HOURS FOR 21 DAYS
     Route: 042
  7. TACROLIMUS. [Concomitant]
     Active Substance: TACROLIMUS
     Indication: IMMUNOSUPPRESSANT DRUG THERAPY
     Dosage: FOLLOWED BY 2MG EVERY 12 HOURS
     Route: 065
  8. FILGRASTIM [Concomitant]
     Active Substance: FILGRASTIM
     Route: 042
  9. GANCICLOVIR. [Suspect]
     Active Substance: GANCICLOVIR
     Route: 065
  10. TACROLIMUS. [Concomitant]
     Active Substance: TACROLIMUS
     Dosage: FOLLOWED BY 1MG EVERY 12 HOURS
     Route: 065
  11. PREDNISONE. [Concomitant]
     Active Substance: PREDNISONE
     Indication: IMMUNOSUPPRESSANT DRUG THERAPY
     Dosage: FOLLOWED BY 10MG EVERY 24 HOURS
     Route: 065
  12. PREDNISONE. [Concomitant]
     Active Substance: PREDNISONE
     Dosage: FOLLOWED BY 5MG EVERY 24 HOURS
     Route: 065
  13. MYCOPHENOLATE MOFETIL. [Concomitant]
     Active Substance: MYCOPHENOLATE MOFETIL
     Indication: IMMUNOSUPPRESSANT DRUG THERAPY
     Dosage: FOLLOWED BY 0.5G EVERY 24 HOURS
     Route: 065
  14. FILGRASTIM [Concomitant]
     Active Substance: FILGRASTIM
     Dosage: FOLLOWED BY 170MG EVERY 24 HOURS FOR 117 DAYS
     Route: 042
  15. GANCICLOVIR. [Suspect]
     Active Substance: GANCICLOVIR
     Route: 042
  16. ISONIAZID. [Concomitant]
     Active Substance: ISONIAZID
     Indication: CYTOMEGALOVIRUS INFECTION
     Route: 065
  17. GANCICLOVIR. [Suspect]
     Active Substance: GANCICLOVIR
     Dosage: FURTHER ADMINISTERED 320MG EVERY 12 HOURS FOR 100 DAYS
     Route: 042
  18. TACROLIMUS. [Concomitant]
     Active Substance: TACROLIMUS
     Dosage: RE?INITIATED AT 2MG EVERY 12 HOURS FOLLOWED BY 1MG EVERY 12 HOURS (ALTERNATELY ADMINISTERED)
     Route: 065
  19. ERYTHROPOIETIN [Concomitant]
     Active Substance: ERYTHROPOIETIN
     Indication: PRODUCT USED FOR UNKNOWN INDICATION
     Route: 065
  20. GANCICLOVIR. [Suspect]
     Active Substance: GANCICLOVIR
     Indication: CYTOMEGALOVIRUS INFECTION
     Dosage: FURTHER, RE?INITIATED AT A SAME DOSE FOR 14 DAYS; LATER STARTED AT 180MG EVERY 12 HOURS FOR 40 DAYS
     Route: 042
  21. MYCOPHENOLATE MOFETIL. [Concomitant]
     Active Substance: MYCOPHENOLATE MOFETIL
     Dosage: FOLLOWED BY 0.25G EVERY 24 HOURS
     Route: 065
  22. FILGRASTIM [Concomitant]
     Active Substance: FILGRASTIM
     Indication: PRODUCT USED FOR UNKNOWN INDICATION
     Dosage: FOLLOWED BY 15 IU/WEEK
     Route: 042
  23. FILGRASTIM [Concomitant]
     Active Substance: FILGRASTIM
     Dosage: LATER STARTED AT 160 MG EVERY 24 HOURS FOR 76 DAYS
     Route: 042
  24. VALGANCICLOVIR. [Concomitant]
     Active Substance: VALGANCICLOVIR
     Indication: CYTOMEGALOVIRUS INFECTION
     Dosage: A TOTAL OF 450MG EVERY 24H; LATER, RE?INITIATED AT 450MG EVERY 24 HOURS
     Route: 048
  25. VALGANCICLOVIR. [Concomitant]
     Active Substance: VALGANCICLOVIR
     Dosage: LATER, SAME DOSE WAS CONTINUED AS EVERY 12 HOURS
     Route: 048
  26. FILGRASTIM [Concomitant]
     Active Substance: FILGRASTIM
     Dosage: FOLLOWED BY 7 IU/2 DAYS
     Route: 042

REACTIONS (2)
  - Treatment failure [Unknown]
  - Drug resistance [Unknown]
